FAERS Safety Report 18628552 (Version 1)
Quarter: 2020Q4

REPORT INFORMATION
  Report Type: Spontaneous
  Country: HR (occurrence: HR)
  Receive Date: 20201217
  Receipt Date: 20201217
  Transmission Date: 20210114
  Serious: Yes (Other)
  Sender: FDA-Public Use
  Company Number: HR-TEVA-2020-HR-1858408

PATIENT
  Age: 87 Year
  Sex: Female
  Weight: 76 kg

DRUGS (1)
  1. KLAVOCIN [Suspect]
     Active Substance: AMOXICILLIN\CLAVULANIC ACID
     Indication: PNEUMONIA
     Dosage: 1 DF = 1 FORM FOR ORAL ADMINISTRATION = 875 MG AMOXICILLIN (AMOXICILLIN TRIHYDRATE) + 125 MG CLAVULA
     Route: 048
     Dates: start: 20190706, end: 20190707

REACTIONS (1)
  - Diarrhoea haemorrhagic [Recovered/Resolved]

NARRATIVE: CASE EVENT DATE: 20190707
